FAERS Safety Report 21016582 (Version 5)
Quarter: 2022Q3

REPORT INFORMATION
  Report Type: Spontaneous
  Country: HU (occurrence: HU)
  Receive Date: 20220628
  Receipt Date: 20220818
  Transmission Date: 20221027
  Serious: Yes (Hospitalization, Other)
  Sender: FDA-Public Use
  Company Number: HU-002147023-NVSC2022HU132529

PATIENT
  Age: 65 Year
  Sex: Female

DRUGS (21)
  1. PREGABALIN [Suspect]
     Active Substance: PREGABALIN
     Indication: Product used for unknown indication
     Dosage: 150 MILLIGRAM, QD (75 MG, BID (FOR ONE WEEK))
     Route: 065
  2. TRAMADOL [Suspect]
     Active Substance: TRAMADOL
     Indication: Analgesic therapy
     Dosage: 50 MILLIGRAM, PRN (50 MG, PRN (AS NEEDED))
     Route: 065
  3. PANTOPRAZOLE [Suspect]
     Active Substance: PANTOPRAZOLE
     Indication: Product used for unknown indication
     Dosage: 40 MILLIGRAM (40 MG)
     Route: 065
  4. CATAFLAM [Suspect]
     Active Substance: DICLOFENAC POTASSIUM
     Indication: Pain
     Dosage: 50 MILLIGRAM (50 MG)
     Route: 065
  5. PACLITAXEL [Suspect]
     Active Substance: PACLITAXEL
     Indication: Breast cancer metastatic
     Dosage: 300 MILLIGRAM (300 MG), START 13-JAN-2022
     Route: 065
     Dates: end: 20220203
  6. FENTANYL [Suspect]
     Active Substance: FENTANYL
     Indication: Product used for unknown indication
     Dosage: UNK
     Route: 065
  7. CIPROFLOXACIN [Suspect]
     Active Substance: CIPROFLOXACIN
     Indication: Bacteriuria
     Dosage: 1000 MILLIGRAM, QD (500 MG, BID (FOR 7 DAYS))
     Route: 065
  8. VOLTAREN [Suspect]
     Active Substance: DICLOFENAC SODIUM
     Indication: Pain
     Dosage: 75 MILLIGRAM
     Route: 065
     Dates: start: 20211230
  9. AMLODIPINE [Suspect]
     Active Substance: AMLODIPINE BESYLATE
     Indication: Hypertension
     Dosage: UNK, START FEB-2022
     Route: 065
  10. TEGRETOL XR [Suspect]
     Active Substance: CARBAMAZEPINE
     Indication: Pain
     Dosage: 200 MILLIGRAM, QD (200 MG, QD (FOR ONE WEEK))
     Route: 065
     Dates: start: 20211230, end: 20220103
  11. TEGRETOL XR [Suspect]
     Active Substance: CARBAMAZEPINE
     Dosage: 300 MILLIGRAM (300 MG)
     Route: 065
     Dates: start: 20220113, end: 20220203
  12. FAMOTIDINE [Concomitant]
     Active Substance: FAMOTIDINE
     Indication: Product used for unknown indication
     Dosage: 40 MILLIGRAM (40 MG)
     Route: 065
  13. CHLOROPYRAMINE HYDROCHLORIDE [Concomitant]
     Active Substance: CHLOROPYRAMINE HYDROCHLORIDE
     Indication: Product used for unknown indication
     Dosage: UNK, QD
     Route: 065
  14. CALCIUM [Concomitant]
     Active Substance: CALCIUM
     Indication: Product used for unknown indication
     Dosage: 500 MILLIGRAM (500 MG)
     Route: 065
  15. CONTROLOC [Concomitant]
     Active Substance: PANTOPRAZOLE SODIUM
     Indication: Product used for unknown indication
     Dosage: 40 MILLIGRAM, QD (40 MG, QD)
     Route: 065
  16. XGEVA [Concomitant]
     Active Substance: DENOSUMAB
     Indication: Product used for unknown indication
     Dosage: UNK, MONTHLY (QMO)
     Route: 058
     Dates: start: 20211230
  17. GEMCITABINE\GEMCITABINE HYDROCHLORIDE [Concomitant]
     Active Substance: GEMCITABINE\GEMCITABINE HYDROCHLORIDE
     Indication: Product used for unknown indication
     Dosage: 2000 MILLIGRAM (2000 MG), START 10-FEB-2022
     Route: 065
     Dates: end: 20220217
  18. ENOXAPARIN SODIUM [Concomitant]
     Active Substance: ENOXAPARIN SODIUM
     Indication: Product used for unknown indication
     Dosage: 6000 INTERNATIONAL UNIT (6000 IU)
     Route: 065
  19. VITAMIN D3 [Concomitant]
     Active Substance: CHOLECALCIFEROL
     Indication: Product used for unknown indication
     Dosage: 3000 INTERNATIONAL UNIT (3000 IU)
     Route: 065
  20. FENTANYL [Concomitant]
     Active Substance: FENTANYL
     Indication: Product used for unknown indication
     Dosage: 100 (PATCHES)
     Route: 065
  21. LEVOTHYROXINE SODIUM [Concomitant]
     Active Substance: LEVOTHYROXINE SODIUM
     Indication: Product used for unknown indication
     Dosage: UNK
     Route: 065

REACTIONS (36)
  - Body temperature increased [Unknown]
  - Erythema [Unknown]
  - Hypothyroidism [Unknown]
  - Lip swelling [Recovered/Resolved]
  - Paraesthesia oral [Recovered/Resolved]
  - Headache [Unknown]
  - Metastases to meninges [Unknown]
  - Epistaxis [Unknown]
  - Hepatic steatosis [Unknown]
  - Hot flush [Unknown]
  - Right ventricular dilatation [Unknown]
  - Urine odour abnormal [Recovered/Resolved]
  - C-reactive protein increased [Unknown]
  - Vaginal haemorrhage [Unknown]
  - Carbohydrate antigen 15-3 [Unknown]
  - Musculoskeletal chest pain [Unknown]
  - Carcinoembryonic antigen [Unknown]
  - Cranial nerve disorder [Unknown]
  - Umbilical hernia [Unknown]
  - Lymphoedema [Unknown]
  - Thyroid mass [Unknown]
  - Bacteriuria [Unknown]
  - Hypoaesthesia [Unknown]
  - Pain [Unknown]
  - Hepatic enzyme increased [Unknown]
  - Vomiting [Unknown]
  - Malaise [Unknown]
  - Tremor [Unknown]
  - Nasopharyngitis [Recovering/Resolving]
  - Nausea [Unknown]
  - Diarrhoea [Recovered/Resolved]
  - Hyperhidrosis [Unknown]
  - Hypertension [Unknown]
  - Decreased appetite [Unknown]
  - Drug ineffective [Unknown]
  - Product use in unapproved indication [Unknown]

NARRATIVE: CASE EVENT DATE: 20220101
